FAERS Safety Report 15962864 (Version 3)
Quarter: 2019Q2

REPORT INFORMATION
  Report Type: Spontaneous
  Country: FI (occurrence: FI)
  Receive Date: 20190214
  Receipt Date: 20190403
  Transmission Date: 20190711
  Serious: Yes (Hospitalization, Other)
  Sender: FDA-Public Use
  Company Number: FI-OTSUKA-2019_003736

PATIENT
  Age: 31 Year
  Sex: Male

DRUGS (11)
  1. ZALASTA [Suspect]
     Active Substance: OLANZAPINE
     Dosage: 5 MG, QD, (PM)
     Route: 065
     Dates: start: 20181210
  2. LAPENAX [Suspect]
     Active Substance: CLOZAPINE
     Dosage: 100 MG, QD
     Route: 065
     Dates: start: 20181122, end: 20181124
  3. ARIPIPRAZOLE. [Suspect]
     Active Substance: ARIPIPRAZOLE
     Dosage: 30 MG, QD
     Route: 065
     Dates: start: 201804
  4. ZALASTA [Suspect]
     Active Substance: OLANZAPINE
     Dosage: 10 MG, QD (PM)
     Route: 065
     Dates: start: 20181217
  5. LAPENAX [Suspect]
     Active Substance: CLOZAPINE
     Indication: PRODUCT USED FOR UNKNOWN INDICATION
     Dosage: 25 MG, QD
     Route: 065
     Dates: start: 20181108, end: 20181120
  6. LAPENAX [Suspect]
     Active Substance: CLOZAPINE
     Dosage: 200 MG, QD, PM
     Route: 065
     Dates: start: 20181120, end: 20181122
  7. OPAMOX [Concomitant]
     Active Substance: OXAZEPAM
     Dosage: 15 MG, BID
     Route: 065
  8. OPAMOX [Concomitant]
     Active Substance: OXAZEPAM
     Indication: PRODUCT USED FOR UNKNOWN INDICATION
     Dosage: 30 MG, QD
     Route: 065
  9. BRINTELLIX [Concomitant]
     Active Substance: VORTIOXETINE HYDROBROMIDE
     Indication: PRODUCT USED FOR UNKNOWN INDICATION
     Dosage: 10 MG, QD
     Route: 065
     Dates: start: 201804
  10. ARIPIPRAZOLE. [Suspect]
     Active Substance: ARIPIPRAZOLE
     Indication: PRODUCT USED FOR UNKNOWN INDICATION
     Dosage: 15 MG, QD
     Route: 065
     Dates: end: 201804
  11. ZALASTA [Suspect]
     Active Substance: OLANZAPINE
     Indication: PRODUCT USED FOR UNKNOWN INDICATION
     Dosage: 15 MG, QD (PM)
     Route: 065
     Dates: start: 20181221

REACTIONS (8)
  - Suicidal ideation [Unknown]
  - Wound haemorrhage [Recovered/Resolved]
  - White blood cell count increased [Recovered/Resolved]
  - Pneumonia [Recovered/Resolved]
  - Eosinophil count increased [Recovered/Resolved]
  - Schizophrenia [Unknown]
  - Syncope [Recovered/Resolved]
  - Myocarditis [Recovered/Resolved]

NARRATIVE: CASE EVENT DATE: 201811
